FAERS Safety Report 4433923-8 (Version None)
Quarter: 2004Q3

REPORT INFORMATION
  Report Type: 
  Country: None (occurrence: None)
  Receive Date: 20040824
  Receipt Date: 20040824
  Transmission Date: 20050211
  Serious: Yes (Hospitalization, Other)
  Sender: FDA-Public Use
  Company Number: None

PATIENT
  Age: 19 Year
  Sex: Female
  Weight: 49.8957 kg

DRUGS (2)
  1. PROZAC [Suspect]
     Indication: DEPRESSION
     Dosage: 20 MG 1 X DAY ORAL
     Route: 048
     Dates: start: 19970201, end: 19980715
  2. EFFEXOR [Suspect]
     Indication: DEPRESSION
     Dosage: 150 MG 1 X DAY ORAL
     Route: 048
     Dates: start: 20010301, end: 20011016

REACTIONS (2)
  - SELF INJURIOUS BEHAVIOUR [None]
  - SUICIDE ATTEMPT [None]
